FAERS Safety Report 7557895-2 (Version None)
Quarter: 2011Q2

REPORT INFORMATION
  Report Type: 
  Country: None (occurrence: None)
  Receive Date: 20110620
  Receipt Date: 20101202
  Transmission Date: 20111010
  Serious: Yes (Hospitalization)
  Sender: FDA-Public Use
  Company Number: A0899184A

PATIENT
  Sex: Female

DRUGS (1)
  1. AVANDAMET [Suspect]
     Indication: DIABETES MELLITUS
     Route: 048
     Dates: end: 20101101

REACTIONS (8)
  - CARDIAC HYPERTROPHY [None]
  - CHEST PAIN [None]
  - CHEST DISCOMFORT [None]
  - PAIN [None]
  - CARDIOMEGALY [None]
  - HYPERTENSION [None]
  - INJURY [None]
  - VENTRICULAR DYSFUNCTION [None]
